FAERS Safety Report 4386447-0 (Version None)
Quarter: 2004Q2

REPORT INFORMATION
  Report Type: 
  Country: None (occurrence: None)
  Receive Date: 20040625
  Receipt Date: 20040625
  Transmission Date: 20050107
  Serious: Yes (Death, Hospitalization)
  Sender: FDA-Public Use
  Company Number: None

PATIENT
  Age: 92 Year

DRUGS (1)
  1. COUMADIN [Suspect]
     Indication: ATRIAL FIBRILLATION

REACTIONS (8)
  - ASPIRATION [None]
  - BLOOD PRESSURE DECREASED [None]
  - FALL [None]
  - HAEMATOMA [None]
  - HAEMODIALYSIS [None]
  - HYPOTENSION [None]
  - PNEUMONIA [None]
  - RENAL IMPAIRMENT [None]
